FAERS Safety Report 5591248-1 (Version None)
Quarter: 2008Q1

REPORT INFORMATION
  Report Type: 
  Country: None (occurrence: None)
  Receive Date: 20080110
  Receipt Date: 20080110
  Transmission Date: 20080703
  Serious: No
  Sender: FDA-Public Use
  Company Number: None

PATIENT
  Sex: Male
  Weight: 97.977 kg

DRUGS (1)
  1. BUDEPRION XL 300 TEVA PHARMACEUTICAL INDUSTRIES [Suspect]
     Indication: DEPRESSION
     Dosage: 300 MG ONCE/DIA
     Dates: start: 20061229, end: 20070207

REACTIONS (2)
  - DRUG INEFFECTIVE [None]
  - THERAPEUTIC RESPONSE UNEXPECTED WITH DRUG SUBSTITUTION [None]
